FAERS Safety Report 8030988-1 (Version None)
Quarter: 2012Q1

REPORT INFORMATION
  Report Type: 
  Country: None (occurrence: None)
  Receive Date: 20120105
  Receipt Date: 20111222
  Transmission Date: 20120608
  Serious: Yes (Hospitalization)
  Sender: FDA-Public Use
  Company Number: 1000026336

PATIENT
  Age: 51 Year
  Sex: Female
  Weight: 47 kg

DRUGS (5)
  1. AMOXAPINE [Concomitant]
  2. DEPAS (ETIZOLAM) [Concomitant]
  3. ZOLPIDEM TARTRATE [Concomitant]
  4. LEXAPRO [Suspect]
     Indication: DEPRESSION
     Dosage: 20 MG (20 MG,1 IN 1 D),ORAL : 10 MG (10 MG,1 IN 1 D),ORAL
     Route: 048
     Dates: end: 20111129
  5. LEXAPRO [Suspect]
     Indication: DEPRESSION
     Dosage: 20 MG (20 MG,1 IN 1 D),ORAL : 10 MG (10 MG,1 IN 1 D),ORAL
     Route: 048
     Dates: start: 20111130, end: 20111205

REACTIONS (4)
  - FEELING ABNORMAL [None]
  - FOAMING AT MOUTH [None]
  - PYREXIA [None]
  - CONVULSION [None]
